FAERS Safety Report 5804515-0 (Version None)
Quarter: 2008Q3

REPORT INFORMATION
  Report Type: 
  Country: None (occurrence: None)
  Receive Date: 20080707
  Receipt Date: 20080707
  Transmission Date: 20090109
  Serious: No
  Sender: FDA-Public Use
  Company Number: None

PATIENT
  Age: 37 Year
  Sex: Female
  Weight: 79.3795 kg

DRUGS (1)
  1. PREDNISONE TAB [Suspect]
     Indication: BACK INJURY
     Dosage: 20MG THREE TIMES A DAY PO
     Route: 048
     Dates: start: 20080629, end: 20080704

REACTIONS (1)
  - OEDEMA PERIPHERAL [None]
